FAERS Safety Report 14713511 (Version 5)
Quarter: 2019Q3

REPORT INFORMATION
  Report Type: Spontaneous
  Country: US (occurrence: US)
  Receive Date: 20180404
  Receipt Date: 20190718
  Transmission Date: 20191004
  Serious: Yes (Other)
  Sender: FDA-Public Use
  Company Number: US-ASTRAZENECA-2018SE41440

PATIENT
  Age: 24504 Day
  Sex: Male

DRUGS (39)
  1. NEXIUM [Suspect]
     Active Substance: ESOMEPRAZOLE MAGNESIUM
     Route: 048
     Dates: start: 199201, end: 201712
  2. PRILOSEC [Suspect]
     Active Substance: OMEPRAZOLE MAGNESIUM
     Route: 048
     Dates: start: 199701, end: 201705
  3. PREVACID 24 HR [Suspect]
     Active Substance: LANSOPRAZOLE
     Route: 065
     Dates: start: 199201, end: 201712
  4. FENOFIBRATE. [Concomitant]
     Active Substance: FENOFIBRATE
  5. SIMVASTATIN. [Concomitant]
     Active Substance: SIMVASTATIN
  6. XANAX [Concomitant]
     Active Substance: ALPRAZOLAM
  7. DEXILANT [Suspect]
     Active Substance: DEXLANSOPRAZOLE
     Route: 065
     Dates: start: 199201, end: 201712
  8. METOLAZONE. [Concomitant]
     Active Substance: METOLAZONE
  9. ATORVASTATIN [Concomitant]
     Active Substance: ATORVASTATIN
  10. PRILOSEC [Suspect]
     Active Substance: OMEPRAZOLE MAGNESIUM
     Route: 048
     Dates: start: 1990, end: 2007
  11. PRILOSEC [Suspect]
     Active Substance: OMEPRAZOLE MAGNESIUM
     Dosage: GENERIC
     Route: 065
  12. PRILOSEC OTC [Suspect]
     Active Substance: OMEPRAZOLE MAGNESIUM
     Route: 048
     Dates: start: 199701, end: 201705
  13. NIFEDIPINE. [Concomitant]
     Active Substance: NIFEDIPINE
  14. ATENOLOL. [Concomitant]
     Active Substance: ATENOLOL
  15. GABAPENTIN. [Concomitant]
     Active Substance: GABAPENTIN
  16. PRILOSEC [Suspect]
     Active Substance: OMEPRAZOLE MAGNESIUM
     Route: 048
     Dates: start: 199201, end: 201712
  17. PRILOSEC [Suspect]
     Active Substance: OMEPRAZOLE MAGNESIUM
     Dosage: GENERIC
     Route: 065
     Dates: start: 2007, end: 2015
  18. PREVACID [Suspect]
     Active Substance: LANSOPRAZOLE
     Route: 065
     Dates: start: 199201, end: 201712
  19. PROTONIX [Suspect]
     Active Substance: PANTOPRAZOLE SODIUM
     Route: 065
     Dates: start: 199201, end: 201712
  20. PREDNISONE. [Concomitant]
     Active Substance: PREDNISONE
  21. LOVAZA [Concomitant]
     Active Substance: OMEGA-3-ACID ETHYL ESTERS
  22. NEXIUM 24HR [Suspect]
     Active Substance: ESOMEPRAZOLE MAGNESIUM
     Route: 048
     Dates: start: 199201, end: 201712
  23. SIMVASTATIN. [Concomitant]
     Active Substance: SIMVASTATIN
  24. BENAZEPRIL [Concomitant]
     Active Substance: BENAZEPRIL HYDROCHLORIDE
  25. PRILOSEC OTC [Suspect]
     Active Substance: OMEPRAZOLE MAGNESIUM
     Route: 048
     Dates: start: 2015
  26. ATENOLOL. [Concomitant]
     Active Substance: ATENOLOL
  27. BENADRYL [Concomitant]
     Active Substance: DIPHENHYDRAMINE HYDROCHLORIDE
  28. BUMETANIDE. [Concomitant]
     Active Substance: BUMETANIDE
  29. PLAVIX [Concomitant]
     Active Substance: CLOPIDOGREL BISULFATE
  30. TYLENOL [Concomitant]
     Active Substance: ACETAMINOPHEN
  31. AMOXICILLIN. [Concomitant]
     Active Substance: AMOXICILLIN
  32. HYDROCODONE-ACETAMINOPHEN [Concomitant]
     Active Substance: ACETAMINOPHEN\HYDROCODONE
  33. CIPROFLOXACIN. [Concomitant]
     Active Substance: CIPROFLOXACIN
  34. ALPRAZOLAM. [Concomitant]
     Active Substance: ALPRAZOLAM
  35. CENTRUM [Concomitant]
     Active Substance: VITAMINS
  36. VITAMIN D [Concomitant]
     Active Substance: VITAMIN D NOS
  37. AMARYL [Concomitant]
     Active Substance: GLIMEPIRIDE
  38. PRILOSEC [Suspect]
     Active Substance: OMEPRAZOLE MAGNESIUM
     Route: 048
     Dates: start: 20160513
  39. ALLOPURINOL. [Concomitant]
     Active Substance: ALLOPURINOL

REACTIONS (6)
  - Chronic kidney disease [Not Recovered/Not Resolved]
  - Hyperparathyroidism secondary [Unknown]
  - Acute kidney injury [Unknown]
  - Renal injury [Unknown]
  - End stage renal disease [Not Recovered/Not Resolved]
  - Renal failure [Recovered/Resolved]

NARRATIVE: CASE EVENT DATE: 20151110
